FAERS Safety Report 18245403 (Version 7)
Quarter: 2023Q4

REPORT INFORMATION
  Report Type: Spontaneous
  Country: JP (occurrence: JP)
  Receive Date: 20200908
  Receipt Date: 20231201
  Transmission Date: 20240109
  Serious: Yes (Other)
  Sender: FDA-Public Use
  Company Number: JP-SANOFI-2020SA157223

PATIENT
  Age: 8 Year
  Sex: Female
  Weight: 17.7 kg

DRUGS (14)
  1. SABRIL [Suspect]
     Active Substance: VIGABATRIN
     Indication: Infantile spasms
     Dosage: 1125 MG, BID
     Route: 048
     Dates: start: 20200212, end: 20200617
  2. SABRIL [Suspect]
     Active Substance: VIGABATRIN
     Dosage: 450 MG, BID
     Route: 048
     Dates: start: 20200116, end: 20200121
  3. SABRIL [Suspect]
     Active Substance: VIGABATRIN
     Dosage: 650 MG, BID
     Route: 048
     Dates: start: 20200122, end: 20200124
  4. SABRIL [Suspect]
     Active Substance: VIGABATRIN
     Dosage: 875 MG, BID
     Route: 048
     Dates: start: 20200125, end: 20200128
  5. SABRIL [Suspect]
     Active Substance: VIGABATRIN
     Dosage: 1125 MG, BID
     Route: 048
     Dates: start: 20200129, end: 20200131
  6. SABRIL [Suspect]
     Active Substance: VIGABATRIN
     Dosage: 1325 MG, BID
     Route: 048
     Dates: start: 20200201, end: 20200211
  7. SABRIL [Suspect]
     Active Substance: VIGABATRIN
     Dosage: 750 MG, BID
     Route: 048
     Dates: start: 20200618, end: 20200701
  8. SABRIL [Suspect]
     Active Substance: VIGABATRIN
     Dosage: 500 MG, BID
     Route: 048
     Dates: start: 20200702, end: 20200715
  9. SABRIL [Suspect]
     Active Substance: VIGABATRIN
     Dosage: 250 MG, BID
     Route: 048
     Dates: start: 20200716, end: 20200729
  10. VALPROATE SODIUM [Concomitant]
     Active Substance: VALPROATE SODIUM
     Indication: Infantile spasms
     Dosage: 200 MG/DAY
     Route: 065
  11. LEVETIRACETAM [Concomitant]
     Active Substance: LEVETIRACETAM
     Indication: Infantile spasms
     Dosage: 300 MG/DAY
     Route: 065
  12. TOPIRAMATE [Concomitant]
     Active Substance: TOPIRAMATE
     Indication: Infantile spasms
     Dosage: UNK
     Route: 065
  13. RUFINAMIDE [Concomitant]
     Active Substance: RUFINAMIDE
     Indication: Infantile spasms
     Dosage: UNK
     Route: 048
  14. PRANLUKAST [Concomitant]
     Active Substance: PRANLUKAST
     Indication: Infantile spasms
     Dosage: UNK
     Route: 065

REACTIONS (4)
  - Retinogram abnormal [Recovering/Resolving]
  - Retinal deposits [Not Recovered/Not Resolved]
  - Affect lability [Recovered/Resolved]
  - Nasopharyngitis [Recovered/Resolved]

NARRATIVE: CASE EVENT DATE: 20200210
